FAERS Safety Report 5260203-3 (Version None)
Quarter: 2007Q1

REPORT INFORMATION
  Report Type: 
  Country: None (occurrence: None)
  Receive Date: 20070309
  Receipt Date: 20060502
  Transmission Date: 20070707
  Serious: No
  Sender: FDA-Public Use
  Company Number: US-GLAXOSMITHKLINE-A0603776A

PATIENT
  Age: 53 Year
  Sex: Male

DRUGS (2)
  1. NICORETTE [Suspect]
  2. NICORETTE FRUIT CHILL OTC [Suspect]

REACTIONS (1)
  - HEADACHE [None]
